FAERS Safety Report 6641652-5 (Version None)
Quarter: 2010Q1

REPORT INFORMATION
  Report Type: 
  Country: None (occurrence: None)
  Receive Date: 20100316
  Receipt Date: 20100303
  Transmission Date: 20100710
  Serious: Yes (Death, Hospitalization)
  Sender: FDA-Public Use
  Company Number: CLOF-10442

PATIENT
  Age: 5 Year
  Sex: Female
  Weight: 12.3 kg

DRUGS (14)
  1. CLOFARABINE (CLOFARABINE) [Suspect]
     Indication: ACUTE LYMPHOCYTIC LEUKAEMIA
     Dosage: 18MG, QDX5, INTRAVENOUS 18 MG, QD, INTRAVENOUS
     Route: 042
     Dates: start: 20061017, end: 20061021
  2. CLOFARABINE (CLOFARABINE) [Suspect]
     Indication: ACUTE LYMPHOCYTIC LEUKAEMIA
     Dosage: 18MG, QDX5, INTRAVENOUS 18 MG, QD, INTRAVENOUS
     Route: 042
     Dates: start: 20061120, end: 20061124
  3. CLOFARABINE (CLOFARABINE) [Suspect]
     Indication: ACUTE LYMPHOCYTIC LEUKAEMIA
     Dosage: 18MG, QDX5, INTRAVENOUS 18 MG, QD, INTRAVENOUS
     Route: 042
     Dates: start: 20061227, end: 20061230
  4. ETOPOSIDE [Suspect]
     Indication: ACUTE LYMPHOCYTIC LEUKAEMIA
     Dosage: 60 MG, QDX5 INTRAVENOUS 60 MG, QD, INTRAVENOUS
     Route: 042
     Dates: start: 20051017, end: 20061021
  5. ETOPOSIDE [Suspect]
     Indication: ACUTE LYMPHOCYTIC LEUKAEMIA
     Dosage: 60 MG, QDX5 INTRAVENOUS 60 MG, QD, INTRAVENOUS
     Route: 042
     Dates: start: 20061120, end: 20061124
  6. ETOPOSIDE [Suspect]
     Indication: ACUTE LYMPHOCYTIC LEUKAEMIA
     Dosage: 60 MG, QDX5 INTRAVENOUS 60 MG, QD, INTRAVENOUS
     Route: 042
     Dates: start: 20061227, end: 20061230
  7. CYCLOPHOSPHAMIDE [Suspect]
     Indication: ACUTE LYMPHOCYTIC LEUKAEMIA
     Dosage: 268 MG, QDX5, INTRAVENOUS 268 MG, QD, INTRAVENOUS
     Route: 042
     Dates: start: 20061018, end: 20061021
  8. CYCLOPHOSPHAMIDE [Suspect]
     Indication: ACUTE LYMPHOCYTIC LEUKAEMIA
     Dosage: 268 MG, QDX5, INTRAVENOUS 268 MG, QD, INTRAVENOUS
     Route: 042
     Dates: start: 20061120, end: 20061124
  9. CYCLOPHOSPHAMIDE [Suspect]
     Indication: ACUTE LYMPHOCYTIC LEUKAEMIA
     Dosage: 268 MG, QDX5, INTRAVENOUS 268 MG, QD, INTRAVENOUS
     Route: 042
     Dates: start: 20061227, end: 20061230
  10. RAINITIDINE (RANITIDINE) [Concomitant]
  11. FILGRASTIM (FLAGRASTIM) [Concomitant]
  12. DEXAMETHASONE TAB [Concomitant]
  13. HYDROCORTONE [Concomitant]
  14. SEPTRA [Concomitant]

REACTIONS (18)
  - ACUTE LEUKAEMIA [None]
  - ARTHROPATHY [None]
  - ASCITES [None]
  - BLAST CELL COUNT INCREASED [None]
  - BRONCHIAL DISORDER [None]
  - CAECITIS [None]
  - HYPOXIA [None]
  - INTESTINAL OBSTRUCTION [None]
  - LYMPHADENOPATHY [None]
  - MALIGNANT NEOPLASM PROGRESSION [None]
  - NEUTROPENIC COLITIS [None]
  - PLATELET COUNT DECREASED [None]
  - PLEURAL EFFUSION [None]
  - PRURITUS [None]
  - RESPIRATORY FAILURE [None]
  - TACHYCARDIA [None]
  - TACHYPNOEA [None]
  - WHITE BLOOD CELL COUNT DECREASED [None]
